FAERS Safety Report 18906429 (Version 1)
Quarter: 2021Q1

REPORT INFORMATION
  Report Type: Spontaneous
  Country: US (occurrence: US)
  Receive Date: 20210217
  Receipt Date: 20210217
  Transmission Date: 20210420
  Serious: No
  Sender: FDA-Public Use
  Company Number: NVSC2021US033819

PATIENT
  Age: 80 Year
  Sex: Female

DRUGS (1)
  1. VOLTAREN [Suspect]
     Active Substance: DICLOFENAC SODIUM
     Indication: SPONDYLITIS
     Dosage: UNK (2 APPLICATIONS)
     Route: 065
     Dates: start: 20200615, end: 20210207

REACTIONS (3)
  - Product use issue [Unknown]
  - Application site erythema [Recovering/Resolving]
  - Product use in unapproved indication [Unknown]
